FAERS Safety Report 8912289 (Version 10)
Quarter: 2013Q1

REPORT INFORMATION
  Report Type: Report from Study
  Country: US (occurrence: US)
  Receive Date: 20121115
  Receipt Date: 20130311
  Transmission Date: 20140127
  Serious: Yes (Life-Threatening, Hospitalization, Other)
  Sender: FDA-Public Use
  Company Number: US-PFIZER INC-2012284196

PATIENT
  Age: 65 Year
  Sex: Female
  Weight: 75.38 kg

DRUGS (14)
  1. NERATINIB [Suspect]
     Indication: BREAST CANCER
     Dosage: 240 MG, DAILY
     Route: 048
     Dates: start: 20120725, end: 20120809
  2. NERATINIB [Suspect]
     Dosage: 200 MG, 1X/DAY
     Route: 048
     Dates: start: 20120810, end: 20121022
  3. DOXORUBICIN HCL [Suspect]
     Indication: BREAST CANCER
     Dosage: 60 MG, EVERY OTHER WEEK
     Route: 042
     Dates: start: 20121024, end: 20121024
  4. PACLITAXEL [Suspect]
     Indication: BREAST CANCER
     Dosage: 80 MG, QW
     Route: 042
     Dates: start: 20120725, end: 20121010
  5. CYCLOPHOSPHAMIDE [Suspect]
     Indication: BREAST CANCER
     Dosage: 600 MG, EVERY OTHER WEEK
     Route: 042
     Dates: start: 20121024, end: 20121024
  6. APREPITANT [Concomitant]
     Dosage: UNK
     Dates: start: 201208
  7. DEXAMETHASONE [Concomitant]
     Dosage: UNK
     Dates: start: 201208
  8. DIPHENOXYLATE W/ATROPINE SULFATE [Concomitant]
     Dosage: UNK
     Dates: start: 20120919
  9. HYDROCORTISONE [Concomitant]
     Dosage: UNK
     Dates: start: 20120919
  10. LORAZEPAM [Concomitant]
     Dosage: UNK
     Dates: start: 201208
  11. NARATRIPTAN [Concomitant]
     Dosage: UNK
  12. OMEPRAZOLE [Concomitant]
     Dosage: UNK
  13. ONDANSETRON [Concomitant]
     Dosage: UNK
     Dates: start: 201208
  14. PROCHLORPERAZINE [Concomitant]
     Dosage: UNK
     Dates: start: 201208

REACTIONS (3)
  - Septic shock [Recovered/Resolved]
  - Acute respiratory failure [Recovered/Resolved]
  - Necrotising fasciitis [Recovered/Resolved]
